FAERS Safety Report 9276714 (Version 6)
Quarter: 2013Q4

REPORT INFORMATION
  Report Type: Report from Study
  Country: CN (occurrence: CN)
  Receive Date: 20130507
  Receipt Date: 20131022
  Transmission Date: 20140711
  Serious: Yes (Hospitalization, Other)
  Sender: FDA-Public Use
  Company Number: CN-GILEAD-2013-0074670

PATIENT
  Age: 48 Year
  Sex: Female
  Weight: 54 kg

DRUGS (5)
  1. BLINDED ADEFOVIR DIPIVOXIL [Suspect]
     Indication: HEPATITIS B
     Dosage: UNK
     Dates: start: 20110922, end: 20120823
  2. BLINDED TENOFOVIR DISOPROXIL FUMARATE [Suspect]
     Indication: HEPATITIS B
     Dosage: UNK
     Dates: start: 20110922, end: 20120823
  3. BLINDED ADEFOVIR DIPIVOXIL [Suspect]
     Dosage: UNK
  4. BLINDED TENOFOVIR DISOPROXIL FUMARATE [Suspect]
     Dosage: UNK
  5. TENOFOVIR DISOPROXIL FUMARATE [Suspect]
     Indication: HEPATITIS B
     Dosage: UNK
     Dates: start: 20120824

REACTIONS (1)
  - Synovitis [Recovering/Resolving]
